FAERS Safety Report 6021772-9 (Version None)
Quarter: 2008Q4

REPORT INFORMATION
  Report Type: 
  Country: None (occurrence: None)
  Receive Date: 20081229
  Receipt Date: 20081223
  Transmission Date: 20090506
  Serious: Yes (Death)
  Sender: FDA-Public Use
  Company Number: US-ASTRAZENECA-2008AC03372

PATIENT
  Age: 59 Year
  Sex: Male

DRUGS (7)
  1. ATENOLOL [Suspect]
     Route: 048
  2. DESIPRAMINE HCL [Suspect]
     Route: 048
  3. SALSALATE [Suspect]
     Route: 048
  4. NALTREXONE [Suspect]
     Route: 048
  5. TRAZODONE [Suspect]
     Route: 048
  6. LEVOTHYROXINE [Suspect]
     Route: 048
  7. ETHANOL [Suspect]
     Route: 048

REACTIONS (1)
  - COMPLETED SUICIDE [None]
